FAERS Safety Report 15654456 (Version 1)
Quarter: 2018Q4

REPORT INFORMATION
  Report Type: Spontaneous
  Country: PK (occurrence: PK)
  Receive Date: 20181126
  Receipt Date: 20181126
  Transmission Date: 20190205
  Serious: Yes (Other)
  Sender: FDA-Public Use
  Company Number: PK-ACCORD-092848

PATIENT
  Age: 18 Year
  Sex: Male

DRUGS (5)
  1. DOXORUBICIN/DOXORUBICIN HYDROCHLORIDE [Suspect]
     Active Substance: DOXORUBICIN HYDROCHLORIDE
     Indication: SYNOVIAL SARCOMA
     Dosage: EVERY TWO TO THREE WEEKS
  2. ETOPOSIDE. [Suspect]
     Active Substance: ETOPOSIDE
     Indication: SYNOVIAL SARCOMA
     Dosage: EVERY TWO TO THREE WEEKS
  3. CYCLOPHOSPHAMIDE/CYCLOPHOSPHAMIDE MONOHYDRATE [Suspect]
     Active Substance: CYCLOPHOSPHAMIDE
     Indication: SYNOVIAL SARCOMA
     Dosage: EVERY TWO TO THREE WEEKS
  4. IFOSFAMIDE. [Suspect]
     Active Substance: IFOSFAMIDE
     Indication: SYNOVIAL SARCOMA
     Dosage: EVERY TWO TO THREE WEEKS
  5. VINCRISTINE [Suspect]
     Active Substance: VINCRISTINE
     Indication: SYNOVIAL SARCOMA
     Dosage: EVERY TWO TO THREE WEEKS

REACTIONS (2)
  - Neutropenia [Unknown]
  - Azoospermia [Unknown]
